FAERS Safety Report 8019404-3 (Version None)
Quarter: 2012Q1

REPORT INFORMATION
  Report Type: 
  Country: None (occurrence: None)
  Receive Date: 20120103
  Receipt Date: 20111222
  Transmission Date: 20120608
  Serious: Yes (Other)
  Sender: FDA-Public Use
  Company Number: PHEH2011US07968

PATIENT
  Sex: Female

DRUGS (6)
  1. SANDOSTATIN [Suspect]
     Indication: ACROMEGALY
     Dosage: UNK (MONTHLY)UKN, UNK
     Route: 030
     Dates: start: 20010301, end: 20010401
  2. SIMVASTATIN [Concomitant]
     Indication: HYPERLIPIDAEMIA
     Dosage: 20 MG(DAILY), UNK
     Route: 048
     Dates: start: 20000101
  3. PARLODEL [Concomitant]
     Indication: HYPERPROLACTINAEMIA
     Dosage: 5 MG, UNK
     Dates: start: 20000101, end: 20020101
  4. HYDROCHLOROTHIAZIDE [Concomitant]
     Indication: HYPERTENSION
     Dosage: 25 MG(DAILY), UNK
     Route: 048
     Dates: start: 20000101
  5. VITAMIN D [Concomitant]
  6. CALCIUM CARBONATE [Concomitant]
     Dosage: 600 MG, UNK
     Route: 048
     Dates: start: 20000101

REACTIONS (4)
  - GENERAL PHYSICAL HEALTH DETERIORATION [None]
  - SWOLLEN TONGUE [None]
  - NEOPLASM MALIGNANT [None]
  - BLOOD GROWTH HORMONE ABNORMAL [None]
